FAERS Safety Report 23792182 (Version 1)
Quarter: 2024Q2

REPORT INFORMATION
  Report Type: Other
  Country: US (occurrence: US)
  Receive Date: 20240429
  Receipt Date: 20240429
  Transmission Date: 20240715
  Serious: Yes (Hospitalization, Other)
  Sender: FDA-Public Use
  Company Number: US-Bion-012915

PATIENT
  Age: 53 Year
  Sex: Female

DRUGS (1)
  1. AMANTADINE HYDROCHLORIDE [Suspect]
     Active Substance: AMANTADINE HYDROCHLORIDE
     Indication: Tardive dyskinesia

REACTIONS (2)
  - Parkinsonism hyperpyrexia syndrome [Recovering/Resolving]
  - Treatment noncompliance [Unknown]
